FAERS Safety Report 21250175 (Version 1)
Quarter: 2022Q3

REPORT INFORMATION
  Report Type: Spontaneous
  Country: US (occurrence: None)
  Receive Date: 20220823
  Receipt Date: 20220823
  Transmission Date: 20221027
  Serious: No
  Sender: FDA-Public Use
  Company Number: None

PATIENT
  Age: 29 Year
  Sex: Male
  Weight: 91.63 kg

DRUGS (1)
  1. ENBREL [Suspect]
     Active Substance: ETANERCEPT
     Indication: Psoriatic arthropathy
     Dosage: INJECT 50MG  SUBCUTANEOUSLY ONCE WEEKLY  AS DIRECTED?
     Route: 058
     Dates: start: 202201

REACTIONS (3)
  - Malaise [None]
  - Hypoaesthesia [None]
  - Hypoaesthesia oral [None]
